FAERS Safety Report 5940696-6 (Version None)
Quarter: 2008Q4

REPORT INFORMATION
  Report Type: 
  Country: None (occurrence: None)
  Receive Date: 20081103
  Receipt Date: 20081103
  Transmission Date: 20090506
  Serious: No
  Sender: FDA-Public Use
  Company Number: None

PATIENT
  Age: 32 Year
  Sex: Female
  Weight: 43.5453 kg

DRUGS (1)
  1. VENLAFAXINE HCL [Suspect]
     Indication: ENDOMETRIOSIS
     Dosage: 1 A DAY PO
     Route: 048

REACTIONS (16)
  - ABNORMAL DREAMS [None]
  - COGNITIVE DISORDER [None]
  - CONFUSIONAL STATE [None]
  - CONSTIPATION [None]
  - DISTURBANCE IN ATTENTION [None]
  - DIZZINESS [None]
  - DRUG WITHDRAWAL SYNDROME [None]
  - HALLUCINATION [None]
  - HYPERPHAGIA [None]
  - HYPERSOMNIA [None]
  - HYSTERECTOMY [None]
  - IMPAIRED WORK ABILITY [None]
  - MEMORY IMPAIRMENT [None]
  - MOOD SWINGS [None]
  - NAUSEA [None]
  - VOMITING [None]
